FAERS Safety Report 8392291-X (Version None)
Quarter: 2012Q2

REPORT INFORMATION
  Report Type: 
  Country: None (occurrence: None)
  Receive Date: 20120529
  Receipt Date: 20120514
  Transmission Date: 20120825
  Serious: Yes (Hospitalization)
  Sender: FDA-Public Use
  Company Number: TH-ROCHE-1013030

PATIENT
  Age: 56 Year
  Sex: Male

DRUGS (2)
  1. LACTULOSE [Concomitant]
  2. TORSEMIDE [Suspect]
     Indication: HEPATIC CIRRHOSIS
     Route: 065

REACTIONS (1)
  - DRUG RASH WITH EOSINOPHILIA AND SYSTEMIC SYMPTOMS [None]
